FAERS Safety Report 7048063-1 (Version None)
Quarter: 2010Q4

REPORT INFORMATION
  Report Type: 
  Country: None (occurrence: None)
  Receive Date: 20101015
  Receipt Date: 20101006
  Transmission Date: 20110411
  Serious: Yes (Other)
  Sender: FDA-Public Use
  Company Number: B0677885A

PATIENT
  Age: 29 Year
  Sex: Male

DRUGS (2)
  1. MALARONE [Suspect]
     Indication: MALARIA PROPHYLAXIS
     Dosage: 1IUAX PER DAY
     Route: 048
     Dates: start: 20100801, end: 20100910
  2. LEVOTHYROXINE SODIUM [Concomitant]
     Dosage: 200MCG PER DAY
     Route: 048

REACTIONS (1)
  - TYPE 1 DIABETES MELLITUS [None]
